FAERS Safety Report 13917715 (Version 1)
Quarter: 2017Q3

REPORT INFORMATION
  Report Type: Spontaneous
  Country: BR (occurrence: BR)
  Receive Date: 20170829
  Receipt Date: 20170829
  Transmission Date: 20171127
  Serious: Yes (Other)
  Sender: FDA-Public Use
  Company Number: PHHY2017BR125820

PATIENT
  Age: 42 Year
  Sex: Female

DRUGS (4)
  1. ANAFRANIL [Suspect]
     Active Substance: CLOMIPRAMINE HYDROCHLORIDE
     Indication: PRODUCT USED FOR UNKNOWN INDICATION
     Route: 065
  2. FLUOXETINE [Suspect]
     Active Substance: FLUOXETINE HYDROCHLORIDE
     Indication: PRODUCT USED FOR UNKNOWN INDICATION
     Route: 065
  3. ZOLPIDEM [Suspect]
     Active Substance: ZOLPIDEM\ZOLPIDEM TARTRATE
     Indication: PRODUCT USED FOR UNKNOWN INDICATION
     Route: 065
  4. TOPIRAMATE. [Suspect]
     Active Substance: TOPIRAMATE
     Indication: PRODUCT USED FOR UNKNOWN INDICATION
     Route: 065

REACTIONS (13)
  - Arthralgia [Recovering/Resolving]
  - Headache [Unknown]
  - Skin disorder [Recovering/Resolving]
  - Concomitant disease aggravated [Unknown]
  - Rash erythematous [Unknown]
  - Skin lesion [Recovered/Resolved]
  - Oedema [Unknown]
  - Pruritus [Unknown]
  - Arthritis [Unknown]
  - Synovitis [Unknown]
  - Depression [Unknown]
  - Psoriasis [Unknown]
  - Panic disorder [Unknown]
